FAERS Safety Report 22352230 (Version 6)
Quarter: 2023Q2

REPORT INFORMATION
  Report Type: Report from Study
  Country: US (occurrence: US)
  Receive Date: 20230522
  Receipt Date: 20230629
  Transmission Date: 20230722
  Serious: No
  Sender: FDA-Public Use
  Company Number: US-002147023-NVSC2023US114260

PATIENT
  Age: 0 Year
  Sex: Male
  Weight: 14.2 kg

DRUGS (1)
  1. ZOLGENSMA [Suspect]
     Active Substance: ONASEMNOGENE ABEPARVOVEC-XIOI
     Indication: Spinal muscular atrophy
     Dosage: 4 MG, ONCE/SINGLE (5.5 ML VIAL X 2 AND 8.3 ML VIAL X 2)
     Route: 042
     Dates: start: 20210415, end: 20210415

REACTIONS (4)
  - Muscular weakness [Unknown]
  - Cerebral disorder [Unknown]
  - Macrocephaly [Unknown]
  - Head circumference abnormal [Recovered/Resolved]

NARRATIVE: CASE EVENT DATE: 20210415
